FAERS Safety Report 14271140 (Version 2)
Quarter: 2018Q1

REPORT INFORMATION
  Report Type: Spontaneous
  Country: JP (occurrence: JP)
  Receive Date: 20171211
  Receipt Date: 20180118
  Transmission Date: 20180508
  Serious: Yes (Other)
  Sender: FDA-Public Use
  Company Number: JP-PFIZER INC-2017430996

PATIENT
  Age: 92 Year
  Sex: Female

DRUGS (9)
  1. DIPYRIDAMOLE. [Concomitant]
     Active Substance: DIPYRIDAMOLE
     Dosage: 150 MG, 1X/DAY ONCE DAILY, AFTER DINNER
  2. MAGNESIUM OXIDE. [Concomitant]
     Active Substance: MAGNESIUM OXIDE
     Dosage: 0.6 G, TWICE DAILY, AFTER BREAKFAST AND DINNER
  3. RAMELTEON [Concomitant]
     Active Substance: RAMELTEON
     Dosage: 8 MG, 1X/DAY ONCE DAILY, AFTER DINNER
  4. LOSARTAN POTASSIUM/HYDROCHLOROTHIAZIDE [Concomitant]
     Active Substance: HYDROCHLOROTHIAZIDE\LOSARTAN POTASSIUM
     Dosage: 1 DF, 1X/DAY ONCE DAILY, AFTER BREAKFAST
  5. LIPITOR [Suspect]
     Active Substance: ATORVASTATIN CALCIUM
     Dosage: 10 MG, 1X/DAY ONCE DAILY, AFTER DINNER
  6. PILSICAINIDE HYDROCHLORIDE [Concomitant]
     Active Substance: PILSICAINIDE HYDROCHLORIDE
     Dosage: 50 MG, 2X/DAY  TWICE DAILY, AFTER BREAKFAST AND DINNER
  7. SPIRONOLACTONE. [Concomitant]
     Active Substance: SPIRONOLACTONE
     Dosage: 25 MG, ONCE DAILY, AFTER BREAKFAST
  8. SEROQUEL [Suspect]
     Active Substance: QUETIAPINE FUMARATE
     Dosage: 25 MG, 1X/DAY ONCE DAILY, AFTER DINNER
  9. BETAHISTINE MESILATE [Concomitant]
     Active Substance: BETAHISTINE MESILATE
     Dosage: 6 MG, 2X/DAY TWICE DAILY, AFTER BREAKFAST AND DINNER

REACTIONS (9)
  - Atrial fibrillation [Unknown]
  - Restlessness [Unknown]
  - Depressed level of consciousness [Recovered/Resolved]
  - Renal impairment [Unknown]
  - Malaise [Unknown]
  - Hypermagnesaemia [Unknown]
  - Blood pressure decreased [Unknown]
  - Atrioventricular block [Unknown]
  - Bundle branch block right [Unknown]
